FAERS Safety Report 21650178 (Version 1)
Quarter: 2022Q4

REPORT INFORMATION
  Report Type: Other
  Country: FR (occurrence: FR)
  Receive Date: 20221128
  Receipt Date: 20221128
  Transmission Date: 20230112
  Serious: Yes (Hospitalization)
  Sender: FDA-Public Use
  Company Number: None

PATIENT
  Age: 79 Year
  Sex: Male
  Weight: 44 kg

DRUGS (2)
  1. FETROJA [Suspect]
     Active Substance: CEFIDEROCOL SULFATE TOSYLATE
     Indication: Acinetobacter bacteraemia
     Dosage: 2 G, EVERY 8 HOUR
     Route: 042
     Dates: start: 20221019, end: 20221020
  2. ACYCLOVIR [Suspect]
     Active Substance: ACYCLOVIR
     Indication: Herpes ophthalmic
     Dosage: 600 MG, EVERY 8 HOUR
     Route: 042
     Dates: start: 20221024, end: 20221025

REACTIONS (2)
  - Acute kidney injury [Not Recovered/Not Resolved]
  - Encephalopathy [Not Recovered/Not Resolved]

NARRATIVE: CASE EVENT DATE: 20221025
